FAERS Safety Report 4388121-3 (Version None)
Quarter: 2004Q2

REPORT INFORMATION
  Report Type: 
  Country: None (occurrence: None)
  Receive Date: 20040629
  Receipt Date: 20040629
  Transmission Date: 20050107
  Serious: No
  Sender: FDA-Public Use
  Company Number: None

PATIENT
  Age: 69 Year
  Sex: Male
  Weight: 58.0604 kg

DRUGS (2)
  1. AMBIEN [Suspect]
     Dosage: 1 AT 10PM ONCE DAILY ORAL
     Route: 048
  2. SODIUM CHLORIDE 0.9% [Concomitant]

REACTIONS (5)
  - COMA [None]
  - FALL [None]
  - HALLUCINATION [None]
  - MEMORY IMPAIRMENT [None]
  - URINARY INCONTINENCE [None]
